FAERS Safety Report 9769190 (Version 3)
Quarter: 2014Q1

REPORT INFORMATION
  Report Type: Report from Study
  Country: ES (occurrence: ES)
  Receive Date: 20131218
  Receipt Date: 20140107
  Transmission Date: 20141002
  Serious: Yes (Death, Hospitalization)
  Sender: FDA-Public Use
  Company Number: ES-SA-2013SA129117

PATIENT
  Age: 73 Year
  Sex: Male
  Weight: 79 kg

DRUGS (10)
  1. CABAZITAXEL [Suspect]
     Indication: TRANSITIONAL CELL CARCINOMA
     Route: 042
     Dates: start: 20131115, end: 20131115
  2. ENALAPRIL [Concomitant]
     Indication: HYPERTENSION
     Route: 048
     Dates: start: 2008
  3. LOVASTATIN [Concomitant]
     Indication: HYPERCHOLESTEROLAEMIA
     Route: 048
     Dates: start: 2008
  4. METFORMIN [Concomitant]
     Indication: DIABETES MELLITUS
     Route: 048
     Dates: start: 2008
  5. OMEPRAZOLE [Concomitant]
     Indication: PROPHYLAXIS
     Route: 048
     Dates: start: 2008
  6. PARACETAMOL [Concomitant]
     Route: 048
     Dates: start: 2013
  7. REPAGLINIDE [Concomitant]
     Route: 048
     Dates: start: 2008
  8. SPIRIVA [Concomitant]
     Dosage: DOSE:1 PUFF(S)
     Route: 050
     Dates: start: 2008
  9. UNIBENESTAN [Concomitant]
     Route: 048
     Dates: start: 2008
  10. VESICARE [Concomitant]
     Indication: NEOPLASM
     Dates: start: 2013

REACTIONS (1)
  - Disease progression [Fatal]
